FAERS Safety Report 5814950-2 (Version None)
Quarter: 2008Q3

REPORT INFORMATION
  Report Type: 
  Country: None (occurrence: None)
  Receive Date: 20080718
  Receipt Date: 20080709
  Transmission Date: 20090109
  Serious: Yes (Death, Congenital Anomaly)
  Sender: FDA-Public Use
  Company Number: PHNU2006DE01844

PATIENT
  Sex: Male
  Weight: 1.64 kg

DRUGS (1)
  1. GLEEVEC [Suspect]
     Dosage: MATERNAL DOSE: 400 MG/DAY
     Route: 064

REACTIONS (15)
  - APGAR SCORE LOW [None]
  - ASCITES [None]
  - ATRIAL SEPTAL DEFECT [None]
  - CEREBELLAR HYPOPLASIA [None]
  - DRUG EXPOSURE DURING PREGNANCY [None]
  - HEART DISEASE CONGENITAL [None]
  - HYDROCEPHALUS [None]
  - MUSCLE SPASTICITY [None]
  - NEONATAL RESPIRATORY FAILURE [None]
  - PERICARDIAL EFFUSION [None]
  - PREMATURE BABY [None]
  - SKIN OEDEMA [None]
  - TRANSPOSITION OF THE GREAT VESSELS [None]
  - ULTRASOUND DOPPLER ABNORMAL [None]
  - ULTRASOUND FOETAL [None]
